FAERS Safety Report 20292369 (Version 1)
Quarter: 2022Q1

REPORT INFORMATION
  Report Type: Spontaneous
  Country: NL (occurrence: NL)
  Receive Date: 20220104
  Receipt Date: 20220104
  Transmission Date: 20220423
  Serious: Yes (Other)
  Sender: FDA-Public Use
  Company Number: NL-PURDUE-USA-2021-0290449

PATIENT

DRUGS (1)
  1. LIDOCAINE [Suspect]
     Active Substance: LIDOCAINE
     Indication: Rotator cuff syndrome
     Dosage: 5 ML, UNK
     Route: 065

REACTIONS (1)
  - Syncope [Unknown]
